FAERS Safety Report 16343140 (Version 1)
Quarter: 2019Q2

REPORT INFORMATION
  Report Type: Spontaneous
  Country: SE (occurrence: SE)
  Receive Date: 20190522
  Receipt Date: 20190522
  Transmission Date: 20190711
  Serious: Yes (Other)
  Sender: FDA-Public Use
  Company Number: PHHY2019SE114976

PATIENT
  Age: 23 Year
  Sex: Female
  Weight: 80 kg

DRUGS (1)
  1. DESONIX [BUDESONIDE] [Suspect]
     Active Substance: BUDESONIDE
     Indication: ALLERGY TO ANIMAL
     Dosage: 64 UG, 1 TOTAL
     Route: 045
     Dates: start: 20190418, end: 20190418

REACTIONS (2)
  - Dyspnoea [Recovered/Resolved]
  - Pharyngeal swelling [Recovered/Resolved]

NARRATIVE: CASE EVENT DATE: 20190418
